FAERS Safety Report 16780034 (Version 4)
Quarter: 2025Q1

REPORT INFORMATION
  Report Type: Spontaneous
  Country: NL (occurrence: NL)
  Receive Date: 20190906
  Receipt Date: 20250331
  Transmission Date: 20250409
  Serious: Yes (Hospitalization, Other)
  Sender: NOVARTIS
  Company Number: PHHY2019NL043453

PATIENT
  Age: 68 Year
  Sex: Male

DRUGS (10)
  1. IMATINIB [Interacting]
     Active Substance: IMATINIB
     Indication: Chronic myeloid leukaemia (in remission)
     Route: 065
  2. IMATINIB [Interacting]
     Active Substance: IMATINIB
     Route: 065
  3. SIMVASTATIN [Interacting]
     Active Substance: SIMVASTATIN
     Indication: Product used for unknown indication
     Route: 065
     Dates: start: 2007, end: 20180611
  4. SIMVASTATIN [Interacting]
     Active Substance: SIMVASTATIN
     Route: 065
  5. CLOPIDOGREL [Interacting]
     Active Substance: CLOPIDOGREL BISULFATE
     Indication: Product used for unknown indication
     Route: 065
     Dates: start: 201607
  6. CLOPIDOGREL [Interacting]
     Active Substance: CLOPIDOGREL BISULFATE
     Route: 065
  7. ALFACALCIDOL [Interacting]
     Active Substance: ALFACALCIDOL
     Indication: Product used for unknown indication
     Route: 065
  8. PREDNISONE [Suspect]
     Active Substance: PREDNISONE
     Indication: Interstitial lung disease
     Dosage: 30 MG, QD
     Route: 065
  9. PREDNISONE [Suspect]
     Active Substance: PREDNISONE
     Dosage: 5 MG, QD (TAPERED OFF OVER A PERIOD OF THREE MONTHS TO A MAINTENANCE DOSE OF 5 MG)
     Route: 065
  10. BUMETANIDE [Concomitant]
     Active Substance: BUMETANIDE
     Indication: Product used for unknown indication
     Route: 065

REACTIONS (8)
  - Interstitial lung disease [Recovered/Resolved]
  - Organising pneumonia [Recovered/Resolved]
  - Fatigue [Recovered/Resolved]
  - Weight decreased [Recovered/Resolved]
  - Dyspnoea [Recovered/Resolved]
  - Toxicity to various agents [Recovered/Resolved]
  - Muscular weakness [Recovered/Resolved]
  - Drug interaction [Unknown]

NARRATIVE: CASE EVENT DATE: 20161001
